FAERS Safety Report 9665966 (Version 2)
Quarter: 2013Q4

REPORT INFORMATION
  Report Type: Spontaneous
  Country: US (occurrence: None)
  Receive Date: 20131031
  Receipt Date: 20131112
  Transmission Date: 20140711
  Serious: Yes (Death, Other)
  Sender: FDA-Public Use
  Company Number: 2013US001567

PATIENT
  Age: 70 Year
  Sex: Male
  Weight: 75 kg

DRUGS (5)
  1. ICLUSIG [Suspect]
     Indication: CHRONIC MYELOID LEUKAEMIA
     Route: 048
     Dates: start: 20130226
  2. JALYN (DUTASTERIDE, TAMSULOSIN HYDROCHLORIDE) [Concomitant]
  3. STOOL SOFTENER (DOCUSATE SODIUM) [Concomitant]
  4. VALACYCLOVIR HYDROCHLORIDE [Concomitant]
  5. MILK OF MAGNESIA [Concomitant]

REACTIONS (12)
  - Skin cancer [None]
  - Chest pain [None]
  - Urinary retention [None]
  - Alopecia [None]
  - Skin exfoliation [None]
  - Dizziness [None]
  - Hypoaesthesia [None]
  - Headache [None]
  - Constipation [None]
  - Cardiomyopathy [None]
  - Ventricular tachycardia [None]
  - Coronary artery disease [None]
